FAERS Safety Report 6081716-0 (Version None)
Quarter: 2009Q1

REPORT INFORMATION
  Report Type: 
  Country: None (occurrence: None)
  Receive Date: 20090218
  Receipt Date: 20090213
  Transmission Date: 20090719
  Serious: Yes (Death)
  Sender: FDA-Public Use
  Company Number: JP-ASTRAZENECA-2009SE00801

PATIENT
  Age: 83 Year
  Sex: Female

DRUGS (5)
  1. PARAPRES [Suspect]
     Indication: CARDIAC FAILURE
     Route: 048
     Dates: start: 20080928
  2. FUROSEMIDE [Concomitant]
     Route: 065
  3. SINTROM [Concomitant]
     Route: 065
  4. DIGITALIS TAB [Concomitant]
     Route: 065
  5. ESPIRONOLACTON [Concomitant]
     Route: 065

REACTIONS (3)
  - ASTHENIA [None]
  - CONFUSIONAL STATE [None]
  - RENAL FAILURE [None]
